FAERS Safety Report 9753250 (Version 2)
Quarter: 2013Q4

REPORT INFORMATION
  Report Type: Spontaneous
  Country: US (occurrence: US)
  Receive Date: 20131213
  Receipt Date: 20131213
  Transmission Date: 20140711
  Serious: No
  Sender: FDA-Public Use
  Company Number: US-GILEAD-2010-0026782

PATIENT
  Sex: Female
  Weight: 95.25 kg

DRUGS (13)
  1. LETAIRIS [Suspect]
     Indication: PULMONARY ARTERIAL HYPERTENSION
     Route: 048
     Dates: start: 20081028
  2. LASIX [Concomitant]
  3. METOLAZONE [Concomitant]
  4. ARANESP [Concomitant]
  5. AMBIEN [Concomitant]
  6. ALLOPURINOL [Concomitant]
  7. ROBAXIN [Concomitant]
  8. RIBOFLAVIN [Concomitant]
  9. CALCIUM [Concomitant]
  10. K-DUR [Concomitant]
  11. FISH OIL [Concomitant]
  12. VITAMIN B12 [Concomitant]
  13. VITAMIN D [Concomitant]

REACTIONS (2)
  - Neuralgia [Unknown]
  - Nasal congestion [Not Recovered/Not Resolved]
